FAERS Safety Report 8942402 (Version 4)
Quarter: 2013Q3

REPORT INFORMATION
  Report Type: Report from Study
  Country: DE (occurrence: DE)
  Receive Date: 20121204
  Receipt Date: 20130716
  Transmission Date: 20140515
  Serious: Yes (Hospitalization)
  Sender: FDA-Public Use
  Company Number: DE-ELI_LILLY_AND_COMPANY-DE201112006496

PATIENT
  Age: 70 Year
  Sex: Male
  Weight: 69.6 kg

DRUGS (21)
  1. GEMCITABINE HYDROCHLORIDE [Suspect]
     Indication: NON-SMALL CELL LUNG CANCER
     Dosage: 2337 MG, OTHER
     Dates: start: 20111201
  2. CISPLATIN [Suspect]
     Indication: NON-SMALL CELL LUNG CANCER
     Dosage: 140 MG, UNK
     Dates: start: 20111201
  3. ASS [Concomitant]
     Dosage: 100 MG, UNK
     Dates: start: 2005
  4. NOVALGIN [Concomitant]
     Indication: PAIN
     Dosage: 500 MG, UNK
     Dates: start: 2011
  5. ZOSYN [Concomitant]
     Dosage: 12 G, UNK
     Dates: start: 20111123
  6. CLEXANE [Concomitant]
     Indication: PROPHYLAXIS
     Dosage: UNK
     Dates: start: 20111120
  7. NOVODIGAL [Concomitant]
     Dosage: 0.4 MG, UNK
     Dates: start: 20111124, end: 20111209
  8. PANTAZOL [Concomitant]
     Dosage: 40 MG, UNK
  9. PARACODEINE [Concomitant]
     Dosage: 20 MG, UNK
     Dates: end: 20111126
  10. PERIPLASMAL [Concomitant]
     Indication: DECREASED APPETITE
     Dosage: 2000 ML, UNK
     Dates: start: 20111103, end: 20111120
  11. LIPOVENOES [Concomitant]
     Indication: DECREASED APPETITE
     Dosage: 500 ML, UNK
     Dates: start: 20111120, end: 20111130
  12. CERNEVIT [Concomitant]
     Dosage: 1500 MG, UNK
     Dates: start: 20111120, end: 20111130
  13. LASIX [Concomitant]
     Dosage: 40 MG, UNK
     Route: 042
     Dates: start: 20111202, end: 20111202
  14. SODIUM [Concomitant]
     Dosage: 2000 ML, UNK
     Dates: start: 20111130, end: 20111202
  15. POTASSIUM CHLORIDE [Concomitant]
     Dosage: 80 MG, UNK
     Dates: start: 20111130, end: 20111202
  16. GLUCOSE [Concomitant]
     Dosage: 2000 ML, UNK
     Dates: start: 20111130, end: 20111202
  17. KEVATRIL [Concomitant]
     Dosage: UNK
     Dates: start: 20111201, end: 20111201
  18. KEVATRIL [Concomitant]
     Dosage: UNK
     Route: 042
     Dates: start: 20111202, end: 20111202
  19. CONCOR [Concomitant]
     Indication: TACHYCARDIA
     Dosage: 2.5 MG, UNK
     Dates: start: 20111201
  20. DEXAMETHASONE [Concomitant]
     Dosage: 12 MG, UNK
  21. LASIX [Concomitant]
     Dosage: 40 MG, UNK
     Dates: start: 20111203, end: 20111203

REACTIONS (1)
  - Orthostatic hypotension [Recovered/Resolved]
